FAERS Safety Report 4358537-X (Version None)
Quarter: 2004Q2

REPORT INFORMATION
  Report Type: 
  Country: None (occurrence: None)
  Receive Date: 20040514
  Receipt Date: 20040310
  Transmission Date: 20050107
  Serious: Yes (Life-Threatening, Hospitalization)
  Sender: FDA-Public Use
  Company Number: PHNR2004AU00757

PATIENT
  Age: 42 Year
  Sex: Male

DRUGS (7)
  1. CLOZARIL [Suspect]
     Indication: SCHIZOPHRENIA, PARANOID TYPE
     Dosage: 200 - 800 MG/DAY
     Dates: start: 19941116
  2. VALPROATE SODIUM [Concomitant]
  3. ISOSORBIDE [Concomitant]
  4. ATENOLOL [Concomitant]
  5. ASPIRIN [Concomitant]
  6. FLUOXETINE [Concomitant]
  7. LIPITOR [Concomitant]

REACTIONS (5)
  - HEPATIC FAILURE [None]
  - LUNG ABSCESS [None]
  - PLEURAL EFFUSION [None]
  - PYOTHORAX [None]
  - RENAL FAILURE [None]
